FAERS Safety Report 12379209 (Version 1)
Quarter: 2016Q2

REPORT INFORMATION
  Report Type: Spontaneous
  Country: US (occurrence: US)
  Receive Date: 20160517
  Receipt Date: 20160517
  Transmission Date: 20160815
  Serious: No
  Sender: FDA-Public Use
  Company Number: US-RELYPSA-RLY2016000239

PATIENT

DRUGS (10)
  1. COLACE [Concomitant]
     Active Substance: DOCUSATE SODIUM
  2. VELTASSA [Suspect]
     Active Substance: PATIROMER
     Indication: CHRONIC KIDNEY DISEASE
  3. ACETAMINOPHEN\HYDROCODONE BITARTRATE [Concomitant]
     Active Substance: ACETAMINOPHEN\HYDROCODONE BITARTRATE
  4. METOPROLOL TARTRATE. [Concomitant]
     Active Substance: METOPROLOL TARTRATE
  5. VELTASSA [Suspect]
     Active Substance: PATIROMER
     Indication: HYPERKALAEMIA
     Dosage: 8.4 G, DAILY
     Route: 048
     Dates: start: 20160329
  6. LIPITOR [Concomitant]
     Active Substance: ATORVASTATIN CALCIUM
  7. NORVASC [Concomitant]
     Active Substance: AMLODIPINE BESYLATE
  8. LANTUS [Concomitant]
     Active Substance: INSULIN GLARGINE
  9. ASPIRIN                            /00002701/ [Concomitant]
     Active Substance: ASPIRIN
  10. LASIX [Concomitant]
     Active Substance: FUROSEMIDE

REACTIONS (2)
  - Constipation [Unknown]
  - Adverse event [Unknown]

NARRATIVE: CASE EVENT DATE: 201603
